FAERS Safety Report 9782327 (Version 1)
Quarter: 2013Q4

REPORT INFORMATION
  Report Type: Report from Study
  Country: LB (occurrence: LB)
  Receive Date: 20131226
  Receipt Date: 20131226
  Transmission Date: 20140711
  Serious: Yes (Hospitalization)
  Sender: FDA-Public Use
  Company Number: LB-SA-2013SA132501

PATIENT
  Age: 73 Year
  Sex: Male

DRUGS (11)
  1. LANTUS SOLOSTAR [Suspect]
     Indication: DIABETES MELLITUS
     Dosage: DOSE:25 UNIT(S)
     Route: 058
  2. GLUCOPHAGE [Concomitant]
     Indication: DIABETES MELLITUS
     Route: 048
  3. CRESTOR [Concomitant]
     Route: 048
  4. PREDNISONE [Concomitant]
     Route: 048
  5. VASCOR [Concomitant]
     Route: 048
  6. LORAZEPAM [Concomitant]
     Route: 048
  7. FLUIMUCIL [Concomitant]
     Route: 048
  8. LASIX [Concomitant]
     Route: 048
  9. SERETIDE [Concomitant]
     Route: 048
  10. PROFENID [Concomitant]
     Route: 048
  11. SOLOSTAR [Concomitant]

REACTIONS (1)
  - Angina pectoris [Recovered/Resolved]
